FAERS Safety Report 9653350 (Version 1)
Quarter: 2013Q4

REPORT INFORMATION
  Report Type: Spontaneous
  Country: US (occurrence: None)
  Receive Date: 20131028
  Receipt Date: 20131028
  Transmission Date: 20140711
  Serious: Yes (Other)
  Sender: FDA-Public Use
  Company Number: 2013P1020224

PATIENT
  Age: 49 Year
  Sex: Female
  Weight: 86.18 kg

DRUGS (2)
  1. URSODIOL [Suspect]
     Indication: BILIARY CIRRHOSIS
     Route: 048
     Dates: start: 201303
  2. LEVOTHYROXINE [Concomitant]

REACTIONS (5)
  - Hypersensitivity [None]
  - Swollen tongue [None]
  - Pharyngeal oedema [None]
  - Urticaria [None]
  - Rash [None]
